FAERS Safety Report 23995795 (Version 1)
Quarter: 2024Q2

REPORT INFORMATION
  Report Type: Spontaneous
  Country: US (occurrence: None)
  Receive Date: 20240619
  Receipt Date: 20240619
  Transmission Date: 20240716
  Serious: Yes (Hospitalization)
  Sender: FDA-Public Use
  Company Number: None

PATIENT
  Age: 73 Year
  Sex: Male

DRUGS (1)
  1. ORENCIA [Suspect]
     Active Substance: ABATACEPT
     Indication: Rheumatoid arthritis
     Dosage: OTHER FREQUENCY : WEEKLY;?
     Route: 058

REACTIONS (7)
  - Therapy interrupted [None]
  - COVID-19 [None]
  - Influenza [None]
  - Dyspnoea [None]
  - Arthralgia [None]
  - Arthralgia [None]
  - Neoplasm malignant [None]
